FAERS Safety Report 7689438-7 (Version None)
Quarter: 2011Q3

REPORT INFORMATION
  Report Type: 
  Country: None (occurrence: None)
  Receive Date: 20110817
  Receipt Date: 20110811
  Transmission Date: 20111222
  Serious: Yes (Other)
  Sender: FDA-Public Use
  Company Number: US-SANOFI-AVENTIS-2011SA051871

PATIENT
  Age: 73 Year
  Sex: Female

DRUGS (1)
  1. PLAVIX [Suspect]
     Route: 048
     Dates: start: 20110501

REACTIONS (10)
  - FAECES DISCOLOURED [None]
  - BLOOD PRESSURE INCREASED [None]
  - VAGINAL HAEMORRHAGE [None]
  - PURPURA [None]
  - ARTHRALGIA [None]
  - FATIGUE [None]
  - BONE PAIN [None]
  - DYSPNOEA [None]
  - CHEST PAIN [None]
  - PRURITUS [None]
